FAERS Safety Report 7378782-9 (Version None)
Quarter: 2011Q1

REPORT INFORMATION
  Report Type: 
  Country: None (occurrence: None)
  Receive Date: 20110328
  Receipt Date: 20110318
  Transmission Date: 20110831
  Serious: Yes (Other)
  Sender: FDA-Public Use
  Company Number: US-ASTRAZENECA-2011SE10159

PATIENT
  Age: 53 Year
  Sex: Female
  Weight: 68 kg

DRUGS (7)
  1. ZOCOR [Concomitant]
     Indication: HYPERCHOLESTEROLAEMIA
     Route: 048
  2. HYDROCHLOROTHIAZIDE [Concomitant]
     Indication: HYPERTENSION
     Route: 048
  3. BATRANS [Concomitant]
     Dosage: TOTAL DAILY DOSE 20MCG, Q1H
     Route: 061
  4. SEROQUEL XR [Suspect]
     Indication: BIPOLAR DISORDER
     Route: 048
     Dates: start: 20070101
  5. SEROQUEL XR [Suspect]
     Route: 048
     Dates: start: 20011101
  6. LISINOPRIL [Concomitant]
     Indication: HYPERTENSION
     Route: 048
  7. SEVELLA TITRATE [Concomitant]
     Dosage: TOTAL DAILY DOSE 25MG, BID
     Route: 048

REACTIONS (2)
  - LIMB DISCOMFORT [None]
  - NEUROPATHY PERIPHERAL [None]
